FAERS Safety Report 21142703 (Version 1)
Quarter: 2022Q3

REPORT INFORMATION
  Report Type: Spontaneous
  Country: FR (occurrence: FR)
  Receive Date: 20220728
  Receipt Date: 20220728
  Transmission Date: 20221027
  Serious: Yes (Life-Threatening)
  Sender: FDA-Public Use
  Company Number: None

PATIENT
  Sex: Male
  Weight: 70 kg

DRUGS (6)
  1. MILNACIPRAN [Interacting]
     Active Substance: MILNACIPRAN
     Indication: Psychotic disorder
     Dosage: 25 MG, QD
     Route: 048
     Dates: end: 20211208
  2. VALPROATE SODIUM [Suspect]
     Active Substance: VALPROATE SODIUM
     Indication: Psychotic disorder
     Dosage: 1 G, QD
     Route: 048
     Dates: end: 20211208
  3. LOXAPINE [Suspect]
     Active Substance: LOXAPINE
     Indication: Psychotic disorder
     Dosage: 50 MG, PRN
     Route: 048
     Dates: end: 20211208
  4. QUETIAPINE FUMARATE [Suspect]
     Active Substance: QUETIAPINE FUMARATE
     Indication: Psychotic disorder
     Dosage: 950 MG, QD
     Route: 048
     Dates: end: 20211208
  5. LEVOMEPROMAZINE HYDROCHLORIDE [Suspect]
     Active Substance: LEVOMEPROMAZINE HYDROCHLORIDE
     Indication: Psychotic disorder
     Dosage: 87.5 MG, QD
     Route: 048
     Dates: end: 20211208
  6. VALIUM [Suspect]
     Active Substance: DIAZEPAM
     Indication: Psychotic disorder
     Dosage: 30 MG, QD
     Route: 048
     Dates: end: 20211208

REACTIONS (3)
  - Intestinal obstruction [Recovered/Resolved]
  - Drug interaction [Recovered/Resolved]
  - Off label use [Unknown]

NARRATIVE: CASE EVENT DATE: 20211208
